FAERS Safety Report 10203407 (Version 1)
Quarter: 2014Q2

REPORT INFORMATION
  Report Type: Spontaneous
  Country: CN (occurrence: CN)
  Receive Date: 20140529
  Receipt Date: 20140529
  Transmission Date: 20141212
  Serious: Yes (Hospitalization)
  Sender: FDA-Public Use
  Company Number: PHHY2014CN063417

PATIENT
  Age: 86 Year
  Sex: Female

DRUGS (2)
  1. MIACALCIC [Suspect]
     Dosage: 501 U/ML, QD
     Route: 065
     Dates: start: 20140516, end: 20140517
  2. LIGUSTRAZINE [Concomitant]

REACTIONS (3)
  - Vertigo [Not Recovered/Not Resolved]
  - Nausea [Not Recovered/Not Resolved]
  - Vomiting [Not Recovered/Not Resolved]
